FAERS Safety Report 24591502 (Version 1)
Quarter: 2024Q4

REPORT INFORMATION
  Report Type: Spontaneous
  Country: DE (occurrence: DE)
  Receive Date: 20241108
  Receipt Date: 20241108
  Transmission Date: 20250114
  Serious: Yes (Hospitalization, Other)
  Sender: AUROBINDO
  Company Number: DE-BRISTOL-MYERS SQUIBB COMPANY-2024-136978

PATIENT
  Age: 77 Year
  Sex: Male

DRUGS (4)
  1. CARBOPLATIN [Suspect]
     Active Substance: CARBOPLATIN
     Indication: Non-small cell lung cancer
     Dosage: 940 MILLIGRAM, EVERY 3 WEEKS
     Route: 042
     Dates: start: 20240814
  2. PEMETREXED [Suspect]
     Active Substance: PEMETREXED
     Indication: Non-small cell lung cancer
     Dosage: 940 MILLIGRAM, EVERY 3 WEEKS
     Route: 042
     Dates: start: 20240814
  3. OPDIVO [Suspect]
     Active Substance: NIVOLUMAB
     Indication: Non-small cell lung cancer
     Dosage: 360 MILLIGRAM, EVERY 3 WEEKS
     Route: 042
     Dates: start: 20240815
  4. YERVOY [Suspect]
     Active Substance: IPILIMUMAB
     Indication: Non-small cell lung cancer
     Dosage: 77 MILLIGRAM, EVERY 3 WEEKS
     Route: 042
     Dates: start: 20240815

REACTIONS (3)
  - Neutropenia [Recovered/Resolved]
  - Neutropenic infection [Unknown]
  - Off label use [Unknown]

NARRATIVE: CASE EVENT DATE: 20240826
